FAERS Safety Report 10032414 (Version 2)
Quarter: 2014Q2

REPORT INFORMATION
  Report Type: Spontaneous
  Country: DE (occurrence: None)
  Receive Date: 20140320
  Receipt Date: 20140617
  Transmission Date: 20141212
  Serious: Yes (Hospitalization)
  Sender: FDA-Public Use
  Company Number: 2014-000728

PATIENT
  Sex: Female
  Weight: 47 kg

DRUGS (4)
  1. ACTONEL [Suspect]
     Indication: OSTEOPOROSIS
     Dosage: 35 MG 1/WEEK ON SATURDAY MORNINGS
     Dates: start: 2000, end: 201309
  2. TILIDINE (TILIDINE) [Concomitant]
  3. MAGNESIUM (MAGNESIUM) [Concomitant]
  4. MARCUMAR [Suspect]

REACTIONS (10)
  - Haemorrhage [None]
  - Incorrect dose administered [None]
  - Arthropathy [None]
  - Pain in extremity [None]
  - Muscle spasms [None]
  - Alopecia [None]
  - Hepatic haemorrhage [None]
  - Alopecia [None]
  - Muscle spasms [None]
  - Musculoskeletal discomfort [None]
